FAERS Safety Report 5408554-3 (Version None)
Quarter: 2007Q3

REPORT INFORMATION
  Report Type: 
  Country: None (occurrence: None)
  Receive Date: 20070808
  Receipt Date: 20070802
  Transmission Date: 20080115
  Serious: Yes (Other)
  Sender: FDA-Public Use
  Company Number: JP-AVENTIS-200712063JP

PATIENT

DRUGS (1)
  1. ARAVA [Suspect]
     Route: 048

REACTIONS (1)
  - PLEURAL EFFUSION [None]
